FAERS Safety Report 18664444 (Version 1)
Quarter: 2020Q4

REPORT INFORMATION
  Report Type: Spontaneous
  Country: PL (occurrence: PL)
  Receive Date: 20201225
  Receipt Date: 20201225
  Transmission Date: 20210114
  Serious: Yes (Other)
  Sender: FDA-Public Use
  Company Number: PL-ACCORD-212092

PATIENT
  Age: 47 Year
  Sex: Male
  Weight: 103 kg

DRUGS (6)
  1. FLUOROURACIL. [Suspect]
     Active Substance: FLUOROURACIL
     Indication: COLON CANCER
     Route: 042
     Dates: start: 20170607, end: 20170607
  2. OXALIPLATIN. [Suspect]
     Active Substance: OXALIPLATIN
     Indication: COLON CANCER
     Route: 042
     Dates: start: 20170607, end: 20170607
  3. FLUOROURACIL. [Suspect]
     Active Substance: FLUOROURACIL
     Indication: COLON CANCER
     Route: 042
     Dates: start: 20170607, end: 20170607
  4. DEXAMETHASONE. [Suspect]
     Active Substance: DEXAMETHASONE
     Indication: COLON CANCER
     Route: 042
     Dates: start: 20170607, end: 20170607
  5. ONDANSETRON [Suspect]
     Active Substance: ONDANSETRON
     Indication: COLON CANCER
     Route: 042
     Dates: start: 20170607, end: 20170607
  6. FOLINIC ACID [Suspect]
     Active Substance: LEUCOVORIN
     Indication: COLON CANCER
     Route: 042
     Dates: start: 20170607, end: 20170607

REACTIONS (3)
  - Rash [Recovered/Resolved]
  - Neuropathy peripheral [Recovered/Resolved]
  - Pruritus [Recovered/Resolved]

NARRATIVE: CASE EVENT DATE: 20170607
